FAERS Safety Report 7597166-1 (Version None)
Quarter: 2011Q3

REPORT INFORMATION
  Report Type: 
  Country: None (occurrence: None)
  Receive Date: 20110708
  Receipt Date: 20100624
  Transmission Date: 20111222
  Serious: No
  Sender: FDA-Public Use
  Company Number: US-GLAXOSMITHKLINE-A0866927A

PATIENT
  Age: 75 Year
  Sex: Male

DRUGS (2)
  1. FLOVENT [Suspect]
     Indication: OESOPHAGITIS
     Dosage: 2SPR TWICE PER DAY
     Route: 048
     Dates: start: 20100610
  2. NO CONCURRENT MEDICATION [Concomitant]

REACTIONS (2)
  - INSOMNIA [None]
  - PSYCHOMOTOR HYPERACTIVITY [None]
